FAERS Safety Report 25482801 (Version 3)
Quarter: 2025Q3

REPORT INFORMATION
  Report Type: Report from Study
  Country: CO (occurrence: CO)
  Receive Date: 20250626
  Receipt Date: 20250827
  Transmission Date: 20251020
  Serious: Yes (Other)
  Sender: TAKEDA
  Company Number: CO-TAKEDA-2025TUS057861

PATIENT
  Age: 40 Year
  Sex: Male

DRUGS (2)
  1. ANTI-INHIBITOR COAGULANT COMPLEX [Suspect]
     Active Substance: ANTI-INHIBITOR COAGULANT COMPLEX
     Indication: Factor VIII deficiency
  2. ANTI-INHIBITOR COAGULANT COMPLEX [Suspect]
     Active Substance: ANTI-INHIBITOR COAGULANT COMPLEX
     Indication: Colitis ulcerative
     Dosage: 3500 INTERNATIONAL UNIT, 1/WEEK

REACTIONS (7)
  - Haemorrhage [Unknown]
  - Fall [Unknown]
  - Joint injury [Unknown]
  - Inflammation [Unknown]
  - Pain [Unknown]
  - Arthropathy [Unknown]
  - Influenza [Unknown]

NARRATIVE: CASE EVENT DATE: 20250615
